FAERS Safety Report 7229190-2 (Version None)
Quarter: 2011Q1

REPORT INFORMATION
  Report Type: 
  Country: None (occurrence: None)
  Receive Date: 20110117
  Receipt Date: 20110114
  Transmission Date: 20110831
  Serious: Yes (Other)
  Sender: FDA-Public Use
  Company Number: GB-TEVA-257719ISR

PATIENT
  Age: 78 Year
  Sex: Male

DRUGS (1)
  1. FLUOXETINE [Suspect]
     Indication: DEPRESSION
     Route: 048
     Dates: start: 20080101, end: 20100101

REACTIONS (3)
  - CLUBBING [None]
  - PULMONARY FIBROSIS [None]
  - INTERSTITIAL LUNG DISEASE [None]
